FAERS Safety Report 8171682-6 (Version None)
Quarter: 2012Q1

REPORT INFORMATION
  Report Type: 
  Country: None (occurrence: None)
  Receive Date: 20120228
  Receipt Date: 20120222
  Transmission Date: 20120608
  Serious: Yes (Hospitalization)
  Sender: FDA-Public Use
  Company Number: ES-B.I. PHARMACEUTICALS,INC./RIDGEFIELD-2012-ES-00070ES

PATIENT
  Age: 83 Year
  Sex: Female

DRUGS (4)
  1. PRADAXA [Suspect]
     Dosage: 220 MG
     Route: 048
     Dates: start: 20111001, end: 20111220
  2. OMEPRAZOLE [Concomitant]
     Route: 048
  3. PRADAXA [Suspect]
     Route: 048
     Dates: end: 20110901
  4. URBAL [Concomitant]
     Dosage: 3 G
     Route: 048

REACTIONS (2)
  - UPPER GASTROINTESTINAL HAEMORRHAGE [None]
  - INTENTIONAL DRUG MISUSE [None]
